FAERS Safety Report 9168896 (Version 1)
Quarter: 2013Q1

REPORT INFORMATION
  Report Type: Spontaneous
  Country: US (occurrence: None)
  Receive Date: 20130305
  Receipt Date: 20130305
  Transmission Date: 20140127
  Serious: Yes (Hospitalization)
  Sender: FDA-Public Use
  Company Number: B0871687A

PATIENT
  Age: 54 Year
  Sex: Female

DRUGS (23)
  1. RETROVIR [Suspect]
     Indication: HIV INFECTION
  2. RETROVIR [Suspect]
  3. RETROVIR [Suspect]
  4. RETROVIR [Suspect]
  5. RETROVIR [Suspect]
  6. RETROVIR [Suspect]
  7. RETROVIR [Suspect]
  8. RETROVIR [Suspect]
  9. RETROVIR [Suspect]
  10. RETROVIR [Suspect]
  11. RETROVIR [Suspect]
  12. RETROVIR [Suspect]
  13. EPIVIR [Suspect]
     Indication: HIV INFECTION
  14. INDINAVIR SULFATE [Suspect]
     Indication: HIV INFECTION
  15. STAVUDINE [Suspect]
     Indication: HIV INFECTION
  16. DIDANOSINE [Suspect]
     Indication: HIV INFECTION
  17. HYDROXYUREA [Suspect]
     Indication: HIV INFECTION
  18. NELFINAVIR MESYLATE [Suspect]
     Indication: HIV INFECTION
  19. SAQUINAVIR [Suspect]
     Indication: HIV INFECTION
  20. NEVIRAPINE [Suspect]
     Indication: HIV INFECTION
  21. TENOFOVIR (FORMULATION UNKNOWN) (TENOFOVIR) [Suspect]
     Indication: HIV INFECTION
  22. LOPINAVIR + RITONAVIR [Suspect]
     Indication: HIV INFECTION
  23. EMTRICITABINE [Suspect]
     Indication: HIV INFECTION

REACTIONS (8)
  - Myocardial infarction [None]
  - White blood cell count [None]
  - White blood cell count increased [None]
  - Blood potassium decreased [None]
  - Carbon dioxide decreased [None]
  - Blood phosphorus [None]
  - Blood phosphorus decreased [None]
  - Coronary artery disease [None]
